FAERS Safety Report 20463629 (Version 3)
Quarter: 2022Q1

REPORT INFORMATION
  Report Type: Report from Study
  Country: NL (occurrence: NL)
  Receive Date: 20220211
  Receipt Date: 20220221
  Transmission Date: 20220424
  Serious: Yes (Death, Life-Threatening, Other)
  Sender: FDA-Public Use
  Company Number: NL-ABBVIE-22K-114-4275861-00

PATIENT
  Sex: Male

DRUGS (2)
  1. CARBIDOPA\LEVODOPA [Suspect]
     Active Substance: CARBIDOPA\LEVODOPA
     Indication: Parkinson^s disease
     Dosage: 20 MGML 5 MGML
     Route: 050
     Dates: start: 20210906
  2. CARBIDOPA\LEVODOPA [Suspect]
     Active Substance: CARBIDOPA\LEVODOPA
     Dosage: MD 8.0 ML CD 4.5 ML/H ED 1.5 ML
     Route: 050

REACTIONS (10)
  - Pancreatic carcinoma [Fatal]
  - Pancreatic carcinoma [Unknown]
  - Terminal state [Not Recovered/Not Resolved]
  - Hypophagia [Not Recovered/Not Resolved]
  - Poor quality sleep [Not Recovered/Not Resolved]
  - Bowel movement irregularity [Unknown]
  - Jaundice [Unknown]
  - Fluid intake reduced [Not Recovered/Not Resolved]
  - Somnolence [Not Recovered/Not Resolved]
  - On and off phenomenon [Not Recovered/Not Resolved]

NARRATIVE: CASE EVENT DATE: 20220101
